FAERS Safety Report 5081032-X (Version None)
Quarter: 2006Q3

REPORT INFORMATION
  Report Type: 
  Country: None (occurrence: None)
  Receive Date: 20060810
  Receipt Date: 20060801
  Transmission Date: 20061208
  Serious: Yes (Death, Life-Threatening, Hospitalization, Other)
  Sender: FDA-Public Use
  Company Number: HQWYE308712JAN06

PATIENT
  Age: 80 Year
  Sex: Female
  Weight: 83.26 kg

DRUGS (1)
  1. MYLOTARG [Suspect]
     Indication: ACUTE MYELOID LEUKAEMIA
     Dosage: 17 MG 1X PER 1 DAY, INTRAVENOUS
     Route: 042
     Dates: start: 20051229, end: 20051229

REACTIONS (3)
  - FEBRILE NEUTROPENIA [None]
  - SEPTIC SHOCK [None]
  - SUPRAVENTRICULAR TACHYCARDIA [None]
